FAERS Safety Report 24235784 (Version 1)
Quarter: 2024Q3

REPORT INFORMATION
  Report Type: Spontaneous
  Country: US (occurrence: US)
  Receive Date: 20240822
  Receipt Date: 20240822
  Transmission Date: 20241017
  Serious: No
  Sender: Day One Biopharmaceuticals
  Company Number: US-DAY ONE BIOPHARMACEUTICALS, INC.-2024US000251

PATIENT
  Sex: Female

DRUGS (1)
  1. OJEMDA [Suspect]
     Active Substance: TOVORAFENIB
     Indication: Brain neoplasm malignant
     Route: 065

REACTIONS (7)
  - Cough [Unknown]
  - Oropharyngeal pain [Unknown]
  - Off label use [Unknown]
  - Rash [Unknown]
  - Photosensitivity reaction [Unknown]
  - Constipation [Unknown]
  - Fatigue [Unknown]
